FAERS Safety Report 6899998-1 (Version None)
Quarter: 2010Q3

REPORT INFORMATION
  Report Type: 
  Country: None (occurrence: None)
  Receive Date: 20100803
  Receipt Date: 20100729
  Transmission Date: 20110219
  Serious: Yes (Hospitalization)
  Sender: FDA-Public Use
  Company Number: US-BRISTOL-MYERS SQUIBB COMPANY-15218340

PATIENT
  Age: 80 Year
  Sex: Male
  Weight: 60 kg

DRUGS (13)
  1. CETUXIMAB [Suspect]
     Indication: NON-SMALL CELL LUNG CANCER
     Dosage: RECENT INF(4TH):14JUL10 INTERRUPTED ON 21JUL10
     Route: 042
     Dates: start: 20100616
  2. CARBOPLATIN [Suspect]
     Indication: NON-SMALL CELL LUNG CANCER
     Dosage: RECENT INF(3RD):14JUL10
     Route: 042
     Dates: start: 20100616, end: 20100714
  3. GEMCITABINE [Suspect]
     Indication: NON-SMALL CELL LUNG CANCER
     Dosage: RECENT INF(3RD):14JUL10 INTERRUPTED ON 21JUL10
     Route: 042
     Dates: start: 20100616
  4. DEXAMETHASONE [Concomitant]
     Indication: PROPHYLAXIS
     Dosage: 1.4286MG
     Route: 042
     Dates: start: 20100616
  5. EMLA [Concomitant]
     Indication: ANALGESIC THERAPY
     Dosage: FORMULATION:CREAM
     Route: 061
     Dates: start: 20100616
  6. PROCHLORPERAZINE [Concomitant]
     Indication: NAUSEA
     Route: 048
     Dates: start: 20100616
  7. MAGIC MOUTHWASH [Concomitant]
     Indication: MUCOSAL INFLAMMATION
     Dosage: 1DF=5MG/ML
     Route: 048
     Dates: start: 20100616
  8. MINOCYCLINE HCL [Concomitant]
     Indication: RASH
     Route: 048
     Dates: start: 20100707
  9. HYDROCORTISONE [Concomitant]
     Indication: RASH
     Dosage: FORM:CREAM
     Route: 061
     Dates: start: 20100707
  10. OXYCODONE [Concomitant]
     Indication: PAIN
     Dosage: 1DF=5/500 UNITS NOS
     Route: 048
     Dates: start: 20090901
  11. ONDANSETRON [Concomitant]
  12. ACETAMINOPHEN [Concomitant]
  13. DIPHENHYDRAMINE [Concomitant]

REACTIONS (1)
  - SYNCOPE [None]
